FAERS Safety Report 13492279 (Version 2)
Quarter: 2017Q2

REPORT INFORMATION
  Report Type: Spontaneous
  Country: FR (occurrence: FR)
  Receive Date: 20170427
  Receipt Date: 20170605
  Transmission Date: 20170830
  Serious: Yes (Hospitalization)
  Sender: FDA-Public Use
  Company Number: FR-JNJFOC-20170424335

PATIENT
  Age: 40 Year
  Sex: Female

DRUGS (6)
  1. PLAQUENIL [Suspect]
     Active Substance: HYDROXYCHLOROQUINE SULFATE
     Indication: CUTANEOUS LUPUS ERYTHEMATOSUS
     Route: 048
  2. DUROGESIC [Suspect]
     Active Substance: FENTANYL
     Indication: ANALGESIC INTERVENTION SUPPORTIVE THERAPY
     Route: 062
  3. ORENCIA [Suspect]
     Active Substance: ABATACEPT
     Indication: CUTANEOUS LUPUS ERYTHEMATOSUS
     Dosage: AT 12 WEEKS OF AMENORRHEA.
     Route: 065
     Dates: end: 20161117
  4. CORTANCYL [Suspect]
     Active Substance: PREDNISONE
     Indication: CUTANEOUS LUPUS ERYTHEMATOSUS
     Dosage: IN MORNING
     Route: 048
  5. LOXEN [Suspect]
     Active Substance: NICARDIPINE HYDROCHLORIDE
     Indication: HYPERTENSION
     Dosage: AT 12 WEEKS OF AMENORRHEA.
     Route: 048
     Dates: start: 201611
  6. APROVEL [Suspect]
     Active Substance: IRBESARTAN
     Indication: PRODUCT USED FOR UNKNOWN INDICATION
     Dosage: 0/0/1
     Route: 048
     Dates: end: 201611

REACTIONS (3)
  - Abortion spontaneous [Recovered/Resolved]
  - Premature separation of placenta [Recovered/Resolved]
  - Exposure during pregnancy [Unknown]

NARRATIVE: CASE EVENT DATE: 20170104
